FAERS Safety Report 11549460 (Version 1)
Quarter: 2015Q3

REPORT INFORMATION
  Report Type: Spontaneous
  Country: US (occurrence: US)
  Receive Date: 20150924
  Receipt Date: 20150924
  Transmission Date: 20151125
  Serious: Yes (Hospitalization)
  Sender: FDA-Public Use
  Company Number: US-MALLINCKRODT-T201504368

PATIENT
  Age: 1 Year
  Sex: Male

DRUGS (2)
  1. AMOXIL [Concomitant]
     Active Substance: AMOXICILLIN
     Dosage: SUSPENSION 250/5 ML
  2. H.P. ACTHAR [Suspect]
     Active Substance: CORTICOTROPIN
     Indication: PRODUCT USED FOR UNKNOWN INDICATION
     Dosage: 80 UNITS
     Route: 065
     Dates: start: 20150910

REACTIONS (1)
  - Sepsis [Not Recovered/Not Resolved]

NARRATIVE: CASE EVENT DATE: 20150911
